FAERS Safety Report 9970304 (Version 2)
Quarter: 2014Q1

REPORT INFORMATION
  Report Type: Report from Study
  Country: US (occurrence: US)
  Receive Date: 20140306
  Receipt Date: 20140306
  Transmission Date: 20141002
  Serious: Yes (Other)
  Sender: FDA-Public Use
  Company Number: US-NAPPMUNDI-USA-2014-0111619

PATIENT
  Age: 58 Year
  Sex: Male

DRUGS (1)
  1. OXY CR TAB [Suspect]
     Indication: PAIN
     Dosage: 160 MG, Q12H
     Route: 048
     Dates: start: 20101007

REACTIONS (8)
  - Haemorrhage intracranial [Unknown]
  - Amnesia [Unknown]
  - Pain [Unknown]
  - Back pain [Unknown]
  - Confusional state [Unknown]
  - Headache [Unknown]
  - Intentional drug misuse [Unknown]
  - Feeling abnormal [Unknown]
